FAERS Safety Report 13676772 (Version 2)
Quarter: 2017Q3

REPORT INFORMATION
  Report Type: Spontaneous
  Country: US (occurrence: US)
  Receive Date: 20170622
  Receipt Date: 20170804
  Transmission Date: 20171127
  Serious: No
  Sender: FDA-Public Use
  Company Number: US-PFIZER INC-2017271270

PATIENT
  Age: 74 Year
  Sex: Female
  Weight: 120.7 kg

DRUGS (9)
  1. CINNAMON. [Concomitant]
     Active Substance: CINNAMON
     Indication: BLOOD GLUCOSE ABNORMAL
     Dosage: 650 MG, 1X/DAY (ONCE PER DAY WITH WATER)
     Route: 048
  2. CALCIBOOST [Concomitant]
     Indication: VITAMIN SUPPLEMENTATION
     Dosage: CALCIUM 600MG WITH VITAMIN D 200IU, ONCE PER DAY OR EVERY OTHER DAY
  3. ZEAXANTHIN [Concomitant]
     Active Substance: ZEAXANTHIN
     Indication: EYE DISORDER
     Dosage: 1 DF, DAILY (1 GEL CAP, BY MOUTH, PER DAY)
     Route: 048
  4. NICOTROL [Suspect]
     Active Substance: NICOTINE
     Indication: SMOKING CESSATION THERAPY
     Dosage: UNK, DAILY (6-16 CARTRIAGES/DAY)
     Route: 055
     Dates: start: 20170512
  5. CRESTOR [Concomitant]
     Active Substance: ROSUVASTATIN CALCIUM
     Indication: BLOOD CHOLESTEROL ABNORMAL
     Dosage: 5 MG, 2X/WEEK
     Route: 048
  6. VITAMIN D3 [Concomitant]
     Active Substance: CHOLECALCIFEROL
     Indication: VITAMIN SUPPLEMENTATION
     Dosage: 1000 IU, 1X/DAY
     Route: 048
  7. LISINOPRIL. [Concomitant]
     Active Substance: LISINOPRIL
     Indication: BLOOD PRESSURE ABNORMAL
     Dosage: 20 MG, 1X/DAY (EVERY MORNING)
     Route: 048
  8. LASIX [Concomitant]
     Active Substance: FUROSEMIDE
     Dosage: 40 MG, 1X/DAY (ONE IN THE MORNING)
     Route: 048
  9. COENZYME Q10 [Concomitant]
     Active Substance: UBIDECARENONE
     Dosage: 60 MG, 2X/DAY (TWICE PER DAY WITH FOOD)

REACTIONS (1)
  - Drug ineffective [Unknown]

NARRATIVE: CASE EVENT DATE: 20170606
